FAERS Safety Report 7291580-X (Version None)
Quarter: 2011Q1

REPORT INFORMATION
  Report Type: 
  Country: None (occurrence: None)
  Receive Date: 20110214
  Receipt Date: 20110203
  Transmission Date: 20110831
  Serious: Yes (Hospitalization, Other)
  Sender: FDA-Public Use
  Company Number: PHEH2007US03035

PATIENT
  Sex: Male

DRUGS (62)
  1. ALBUTEROL [Concomitant]
  2. CYMBALTA [Concomitant]
     Indication: DEPRESSION
  3. METOPROLOL [Concomitant]
  4. PROCHLORPERAZINE [Concomitant]
  5. SPIRIVA [Concomitant]
  6. TETRACYCLINE [Concomitant]
     Dosage: 250 MG, UNK
     Route: 048
  7. FIORICET [Concomitant]
  8. PENICILLIN ^GRUNENTHAL^ [Concomitant]
  9. ATIVAN [Concomitant]
  10. LACTULOSE [Concomitant]
  11. MILK OF MAGNESIA TAB [Concomitant]
  12. CHLORHEXIDINE GLUCONATE [Concomitant]
  13. PAXIL [Concomitant]
  14. ADVAIR DISKUS 100/50 [Concomitant]
  15. COMBIVENT                               /GFR/ [Concomitant]
  16. REMERON [Concomitant]
  17. AREDIA [Suspect]
     Indication: MULTIPLE MYELOMA
     Dosage: 90 MG, Q 3 MONTHS
  18. NORTRIPTYLINE [Concomitant]
  19. VICODIN [Concomitant]
     Dosage: 10/325 MG, Q3H PRN
  20. DECADRON [Concomitant]
     Dosage: UNK
  21. NEURONTIN [Concomitant]
  22. PAMELOR [Concomitant]
  23. NORCO [Concomitant]
  24. KETOROLAC [Concomitant]
  25. WELLBUTRIN [Concomitant]
  26. PREDNISONE [Concomitant]
  27. NEXIUM [Concomitant]
     Dosage: 40 MG, DAILY
  28. DEXAMETHASONE [Concomitant]
  29. COMPAZINE [Concomitant]
     Indication: NAUSEA
     Dosage: UNK
  30. FLAGYL [Concomitant]
  31. ALDACTAZINE [Concomitant]
     Indication: OEDEMA
  32. AMBIEN [Concomitant]
  33. ADVAIR DISKUS 100/50 [Concomitant]
     Dosage: UNK
  34. DIAZEPAM [Concomitant]
  35. VALIUM [Concomitant]
     Dosage: 5 MG, UNK
  36. HYDROMORPHONE HCL [Concomitant]
     Dosage: 4 MG, UNK
  37. XYLOCAINE [Concomitant]
     Indication: ORAL PAIN
  38. VELCADE [Concomitant]
     Dosage: 2.7 MG, 21 DAY CYCLE
  39. CLARITIN [Concomitant]
  40. EFFEXOR [Concomitant]
  41. ZOMETA [Suspect]
     Indication: MULTIPLE MYELOMA
     Dosage: UNK
  42. GABAPENTIN [Concomitant]
  43. ACETAMINOPHEN AND HYDROCODONE BITARTRATE [Concomitant]
  44. LORAZEPAM [Concomitant]
  45. PRILOSEC [Concomitant]
  46. PULMICORT [Concomitant]
  47. OXYCODONE HCL [Concomitant]
  48. FLOVENT [Concomitant]
  49. DOCUSATE [Concomitant]
  50. BUTALBITAL COMPOUND [Concomitant]
  51. DILAUDID [Concomitant]
  52. MEXILETINE HYDROCHLORIDE [Concomitant]
     Dosage: 150 MG, BID
  53. CHANTIX [Concomitant]
  54. OXYGEN THERAPY [Concomitant]
  55. REGLAN [Concomitant]
  56. TYLENOL [Concomitant]
  57. DULCOLAX [Concomitant]
  58. PIPERACILLIN AND TAZOBACTAM [Concomitant]
  59. LYRICA [Concomitant]
     Dosage: 75 MG, UNK
  60. METOCLOPRAMIDE HCL [Concomitant]
  61. LOVENOX [Concomitant]
  62. ACTIVASE [Concomitant]

REACTIONS (77)
  - DEFORMITY [None]
  - PNEUMONIA [None]
  - DYSPNOEA [None]
  - COLONIC POLYP [None]
  - UPPER RESPIRATORY TRACT INFECTION [None]
  - SINUSITIS [None]
  - MIGRAINE [None]
  - HYPOAESTHESIA [None]
  - DECREASED APPETITE [None]
  - ATAXIA [None]
  - SEPSIS [None]
  - CHRONIC OBSTRUCTIVE PULMONARY DISEASE [None]
  - LIFE EXPECTANCY SHORTENED [None]
  - BONE DENSITY DECREASED [None]
  - BRONCHITIS [None]
  - GASTRIC HAEMORRHAGE [None]
  - NAUSEA [None]
  - VERTIGO [None]
  - PAIN IN EXTREMITY [None]
  - ABDOMINAL PAIN [None]
  - HILAR LYMPHADENOPATHY [None]
  - OSTEONECROSIS OF JAW [None]
  - PAIN [None]
  - EMOTIONAL DISTRESS [None]
  - HYPOPHAGIA [None]
  - ORAL PAIN [None]
  - SWELLING FACE [None]
  - ATELECTASIS [None]
  - CORONARY ARTERY DISEASE [None]
  - BENIGN PROSTATIC HYPERPLASIA [None]
  - TREMOR [None]
  - ARTHRALGIA [None]
  - MENISCUS LESION [None]
  - EYELID PTOSIS [None]
  - EMPYEMA [None]
  - POLYNEUROPATHY [None]
  - DECREASED INTEREST [None]
  - SINUS TACHYCARDIA [None]
  - EMPHYSEMA [None]
  - HALLUCINATION [None]
  - CHEST DISCOMFORT [None]
  - CEREBRAL ATROPHY [None]
  - TOOTHACHE [None]
  - DYSGEUSIA [None]
  - HEPATIC CYST [None]
  - INSOMNIA [None]
  - OEDEMA [None]
  - ROTATOR CUFF SYNDROME [None]
  - BONE DISORDER [None]
  - GENERAL PHYSICAL HEALTH DETERIORATION [None]
  - ANXIETY [None]
  - BONE EROSION [None]
  - OSTEOARTHRITIS [None]
  - ENCEPHALOPATHY [None]
  - DEAFNESS [None]
  - BACK PAIN [None]
  - DYSPHAGIA [None]
  - ANGINA PECTORIS [None]
  - LIMB DISCOMFORT [None]
  - THROMBOCYTOSIS [None]
  - SINUS DISORDER [None]
  - DEPRESSION [None]
  - ARTHRITIS [None]
  - IMPAIRED HEALING [None]
  - WEIGHT DECREASED [None]
  - CATARACT [None]
  - HYPERMETROPIA [None]
  - HIATUS HERNIA [None]
  - ADRENAL INSUFFICIENCY [None]
  - NEUROPATHY PERIPHERAL [None]
  - DISCOMFORT [None]
  - PAIN IN JAW [None]
  - PLEURAL EFFUSION [None]
  - VOMITING [None]
  - MUSCULOSKELETAL PAIN [None]
  - EYE PAIN [None]
  - CEREBRAL ISCHAEMIA [None]
